FAERS Safety Report 4698101-6 (Version None)
Quarter: 2005Q2

REPORT INFORMATION
  Report Type: 
  Country: None (occurrence: None)
  Receive Date: 20050622
  Receipt Date: 20050622
  Transmission Date: 20051028
  Serious: Yes (Hospitalization)
  Sender: FDA-Public Use
  Company Number: None

PATIENT
  Age: 84 Year
  Sex: Male
  Weight: 66 kg

DRUGS (1)
  1. ASPIRIN [Suspect]
     Indication: ATRIAL FIBRILLATION
     Dosage: 325 MG   DAILY   ORAL
     Route: 048
     Dates: start: 20030101, end: 20050617

REACTIONS (4)
  - GASTROINTESTINAL HAEMORRHAGE [None]
  - HAEMATEMESIS [None]
  - MELAENA [None]
  - NAUSEA [None]
